FAERS Safety Report 17301726 (Version 2)
Quarter: 2020Q1

REPORT INFORMATION
  Report Type: Spontaneous
  Country: CN (occurrence: CN)
  Receive Date: 20200122
  Receipt Date: 20200123
  Transmission Date: 20200409
  Serious: Yes (Other)
  Sender: FDA-Public Use
  Company Number: CN-PFIZER INC-2020026758

PATIENT
  Age: 35 Year
  Sex: Male

DRUGS (1)
  1. CEFOPERAZONE SODIUM [Suspect]
     Active Substance: CEFOPERAZONE SODIUM
     Indication: ANTI-INFECTIVE THERAPY
     Dosage: 2 G, 2X/DAY
     Route: 041
     Dates: start: 19980806, end: 19980828

REACTIONS (1)
  - Epilepsy [Recovered/Resolved]

NARRATIVE: CASE EVENT DATE: 19980819
